FAERS Safety Report 5144557-4 (Version None)
Quarter: 2006Q4

REPORT INFORMATION
  Report Type: 
  Country: None (occurrence: None)
  Receive Date: 20061031
  Receipt Date: 20061018
  Transmission Date: 20070319
  Serious: Yes (Other)
  Sender: FDA-Public Use
  Company Number: 2006126661

PATIENT
  Age: 63 Year
  Sex: Male

DRUGS (4)
  1. DOXYCYCLINE [Suspect]
     Indication: UPPER RESPIRATORY TRACT INFECTION
     Dosage: 1 CAPSULE (1 IN 1 D), ORAL
     Route: 048
     Dates: start: 20060624, end: 20060626
  2. ACETAMINOPHEN [Concomitant]
  3. PROMETHAZINE [Concomitant]
  4. ASCORBIC ACID [Concomitant]

REACTIONS (2)
  - REFUSAL OF TREATMENT BY PATIENT [None]
  - STEVENS-JOHNSON SYNDROME [None]
